FAERS Safety Report 9224211 (Version 2)
Quarter: 2013Q2

REPORT INFORMATION
  Report Type: Spontaneous
  Country: US (occurrence: US)
  Receive Date: 20130411
  Receipt Date: 20130514
  Transmission Date: 20140414
  Serious: No
  Sender: FDA-Public Use
  Company Number: US-PFIZER INC-2013112982

PATIENT
  Age: 85 Year
  Sex: Female

DRUGS (2)
  1. AMIODARONE HCL [Suspect]
     Dosage: UNK
  2. MULTAQ [Suspect]
     Dosage: UNK

REACTIONS (2)
  - Feeling hot [Recovered/Resolved]
  - Burning sensation [Recovered/Resolved]
